FAERS Safety Report 23598950 (Version 1)
Quarter: 2024Q1

REPORT INFORMATION
  Report Type: Spontaneous
  Country: FR (occurrence: FR)
  Receive Date: 20240306
  Receipt Date: 20240306
  Transmission Date: 20240410
  Serious: Yes (Hospitalization, Other)
  Sender: FDA-Public Use
  Company Number: None

PATIENT
  Sex: Male

DRUGS (3)
  1. ACLASTA [Suspect]
     Active Substance: ZOLEDRONIC ACID
     Indication: Product used for unknown indication
     Dosage: 5 MG
     Route: 042
     Dates: start: 20091119
  2. BETAMETHASONE DIPROPIONATE\BETAMETHASONE SODIUM PHOSPHATE [Concomitant]
     Active Substance: BETAMETHASONE DIPROPIONATE\BETAMETHASONE SODIUM PHOSPHATE
     Indication: Product used for unknown indication
     Dosage: UNK
     Route: 065
  3. MORPHINE SULFATE [Concomitant]
     Active Substance: MORPHINE SULFATE
     Indication: Analgesic therapy
     Dosage: 10 MG, QD
     Route: 065

REACTIONS (32)
  - Liver injury [Unknown]
  - Depression [Unknown]
  - Rectal haemorrhage [Unknown]
  - Blood fibrinogen increased [Unknown]
  - Memory impairment [Unknown]
  - Sleep disorder [Unknown]
  - Disturbance in attention [Unknown]
  - Portal vein cavernous transformation [Unknown]
  - Acute abdomen [Unknown]
  - Gastric varices [Unknown]
  - Hepatomegaly [Unknown]
  - Portal vein thrombosis [Unknown]
  - Thrombocytopenia [Recovering/Resolving]
  - Portal hypertension [Unknown]
  - Hepatic cytolysis [Unknown]
  - Transaminases increased [Unknown]
  - Varices oesophageal [Unknown]
  - Vitamin D deficiency [Unknown]
  - Arthralgia [Unknown]
  - Gamma-glutamyltransferase increased [Unknown]
  - Condition aggravated [Unknown]
  - Hyperthermia [Unknown]
  - Protein S increased [Unknown]
  - Muscle disorder [Unknown]
  - Muscle spasms [Unknown]
  - Pain [Unknown]
  - Vomiting [Unknown]
  - Gastrointestinal disorder [Unknown]
  - Splenomegaly [Unknown]
  - Headache [Unknown]
  - Abdominal pain [Unknown]
  - Hepatic steatosis [Unknown]

NARRATIVE: CASE EVENT DATE: 20091119
